APPROVED DRUG PRODUCT: CYCLOPHOSPHAMIDE
Active Ingredient: CYCLOPHOSPHAMIDE
Strength: 500MG/2.5ML (200MG/ML)
Dosage Form/Route: SOLUTION;INTRAVENOUS
Application: N212501 | Product #001 | TE Code: AP
Applicant: DR REDDYS LABORATORIES INC
Approved: Jul 30, 2020 | RLD: Yes | RS: Yes | Type: RX

PATENTS:
Patent 10993952 | Expires: Feb 15, 2036
Patent 12329767 | Expires: Feb 15, 2036